FAERS Safety Report 8773760 (Version 2)
Quarter: 2012Q4

REPORT INFORMATION
  Report Type: 
  Country: US (occurrence: US)
  Receive Date: 20120907
  Receipt Date: 20121019
  Transmission Date: 20130627
  Serious: Yes (Other)
  Sender: FDA-Public Use
  Company Number: US-PFIZER INC-2012220191

PATIENT
  Age: 56 Year
  Sex: Female
  Weight: 78.01 kg

DRUGS (1)
  1. LYRICA [Suspect]
     Indication: FIBROMYALGIA
     Dosage: 75 mg, 2x/day
     Dates: start: 201208

REACTIONS (3)
  - Back pain [Unknown]
  - Weight increased [Not Recovered/Not Resolved]
  - Malaise [Unknown]
